FAERS Safety Report 26087957 (Version 2)
Quarter: 2025Q4

REPORT INFORMATION
  Report Type: Report from Study
  Country: EU (occurrence: EU)
  Receive Date: 20251125
  Receipt Date: 20251222
  Transmission Date: 20260117
  Serious: No
  Sender: PFIZER
  Company Number: EU-PFIZER INC-202500224788

PATIENT

DRUGS (1)
  1. SOMATROPIN [Suspect]
     Active Substance: SOMATROPIN
     Dosage: UNK

REACTIONS (1)
  - Device leakage [Unknown]
